FAERS Safety Report 7433933-2 (Version None)
Quarter: 2011Q2

REPORT INFORMATION
  Report Type: 
  Country: None (occurrence: None)
  Receive Date: 20110420
  Receipt Date: 20110420
  Transmission Date: 20111010
  Serious: No
  Sender: FDA-Public Use
  Company Number: None

PATIENT

DRUGS (15)
  1. AMIODARONE [Concomitant]
  2. AMLODIPINE [Concomitant]
  3. LASIX [Concomitant]
  4. GLUCOTROL [Concomitant]
  5. NITROGLYCERIN [Concomitant]
  6. COREG [Concomitant]
  7. PHENOBARBITAL [Concomitant]
  8. DARVOCET [Suspect]
  9. DITROPAN [Concomitant]
  10. ALDACTONE [Concomitant]
  11. GLIPIZIDE [Concomitant]
  12. ASPIRIN [Concomitant]
  13. PLAVIX [Concomitant]
  14. SIMVASTATIN [Concomitant]
  15. DIOVAN [Concomitant]

REACTIONS (5)
  - ACUTE MYOCARDIAL INFARCTION [None]
  - CORONARY ARTERY OCCLUSION [None]
  - PRODUCT QUALITY ISSUE [None]
  - VENTRICULAR TACHYCARDIA [None]
  - ISCHAEMIC CARDIOMYOPATHY [None]
